FAERS Safety Report 5097657-1 (Version None)
Quarter: 2006Q3

REPORT INFORMATION
  Report Type: 
  Country: None (occurrence: None)
  Receive Date: 20060831
  Receipt Date: 20060821
  Transmission Date: 20061208
  Serious: Yes (Life-Threatening, Hospitalization, Other)
  Sender: FDA-Public Use
  Company Number: THYM-11024

PATIENT
  Sex: Female

DRUGS (1)
  1. THYMOGLOBULIN [Suspect]
     Indication: PROPHYLAXIS AGAINST TRANSPLANT REJECTION
     Dosage: 1.5 MG/KG IV
     Route: 042
     Dates: start: 20060709

REACTIONS (6)
  - ANAPHYLACTIC REACTION [None]
  - BRONCHOSPASM [None]
  - HYPOTENSION [None]
  - INFUSION RELATED REACTION [None]
  - PULMONARY OEDEMA [None]
  - SPUTUM DISCOLOURED [None]
